FAERS Safety Report 21604491 (Version 1)
Quarter: 2022Q4

REPORT INFORMATION
  Report Type: Spontaneous
  Country: US (occurrence: None)
  Receive Date: 20221115
  Receipt Date: 20221115
  Transmission Date: 20230113
  Serious: Yes (Hospitalization)
  Sender: FDA-Public Use
  Company Number: None

PATIENT
  Age: 48 Year
  Sex: Female

DRUGS (1)
  1. ZIEXTENZO [Suspect]
     Active Substance: PEGFILGRASTIM-BMEZ
     Indication: Malignant connective tissue neoplasm
     Dosage: OTHER FREQUENCY : EVERY 21 DAYS;?
     Route: 058
     Dates: start: 20221025

REACTIONS (2)
  - Dyspepsia [None]
  - Chest pain [None]

NARRATIVE: CASE EVENT DATE: 20221102
